FAERS Safety Report 24804918 (Version 3)
Quarter: 2025Q1

REPORT INFORMATION
  Report Type: Spontaneous
  Country: BE (occurrence: BE)
  Receive Date: 20250103
  Receipt Date: 20250131
  Transmission Date: 20250408
  Serious: Yes (Death, Life-Threatening, Hospitalization, Other)
  Sender: PFIZER
  Company Number: BE-PFIZER INC-PV202400169737

PATIENT
  Age: 61 Year
  Sex: Male

DRUGS (9)
  1. LINEZOLID [Suspect]
     Active Substance: LINEZOLID
     Indication: Nocardiosis
     Dosage: 600 MG, 2X/DAY
  2. LINEZOLID [Suspect]
     Active Substance: LINEZOLID
     Indication: Septic shock
  3. MEROPENEM [Suspect]
     Active Substance: MEROPENEM
     Indication: Nocardiosis
     Dosage: 2 G, 3X/DAY, HIGH-DOSE
     Route: 042
  4. MEROPENEM [Suspect]
     Active Substance: MEROPENEM
     Indication: Septic shock
  5. SULFAMETHOXAZOLE\TRIMETHOPRIM [Suspect]
     Active Substance: SULFAMETHOXAZOLE\TRIMETHOPRIM
     Indication: Nocardiosis
     Route: 042
  6. SULFAMETHOXAZOLE\TRIMETHOPRIM [Suspect]
     Active Substance: SULFAMETHOXAZOLE\TRIMETHOPRIM
     Indication: Septic shock
  7. AMIKACIN [Suspect]
     Active Substance: AMIKACIN
     Indication: Nocardiosis
     Route: 042
  8. AMIKACIN [Suspect]
     Active Substance: AMIKACIN
     Indication: Septic shock
  9. GLIQUIDONE [Concomitant]
     Active Substance: GLIQUIDONE
     Indication: Type 2 diabetes mellitus
     Dosage: 30 MG, 1X/DAY

REACTIONS (2)
  - Off label use [Fatal]
  - Drug ineffective for unapproved indication [Fatal]
